FAERS Safety Report 16630180 (Version 2)
Quarter: 2020Q3

REPORT INFORMATION
  Report Type: Spontaneous
  Country: US (occurrence: US)
  Receive Date: 20190725
  Receipt Date: 20200810
  Transmission Date: 20201102
  Serious: No
  Sender: FDA-Public Use
  Company Number: US-GLENMARK PHARMACEUTICALS-2019GMK041614

PATIENT

DRUGS (3)
  1. VITAMINS NOS [Concomitant]
     Active Substance: VITAMINS
     Indication: VITAMIN SUPPLEMENTATION
     Dosage: UNK, OD
     Route: 048
  2. ESTROGEN [Concomitant]
     Active Substance: ESTROGENS
     Indication: MENOPAUSE
     Dosage: 1 MG, QD
     Route: 048
  3. NIZATIDINE CAPSULES USP, 300 MG [Suspect]
     Active Substance: NIZATIDINE
     Indication: GASTROOESOPHAGEAL REFLUX DISEASE
     Dosage: 600 MG, QD (ONCE CAPSULE TWICE A DAY)
     Route: 048
     Dates: start: 20190509

REACTIONS (5)
  - Product taste abnormal [Unknown]
  - No adverse event [Unknown]
  - Product physical issue [Unknown]
  - Poor quality product administered [Unknown]
  - Incorrect product administration duration [Unknown]

NARRATIVE: CASE EVENT DATE: 20190603
